FAERS Safety Report 23160137 (Version 1)
Quarter: 2023Q4

REPORT INFORMATION
  Report Type: Spontaneous
  Country: US (occurrence: US)
  Receive Date: 20231108
  Receipt Date: 20231108
  Transmission Date: 20240109
  Serious: Yes (Other)
  Sender: FDA-Public Use
  Company Number: US-AMGEN-USASP2023195307

PATIENT
  Sex: Female

DRUGS (7)
  1. RITUXIMAB [Suspect]
     Active Substance: RITUXIMAB
     Indication: Philadelphia positive acute lymphocytic leukaemia
     Dosage: UNK
     Route: 065
  2. ADALIMUMAB [Concomitant]
     Active Substance: ADALIMUMAB\ISOPROPYL ALCOHOL
     Dosage: UNK
     Route: 065
  3. CYCLOPHOSPHAMIDE\DEXAMETHASONE\DOXORUBICIN\VINCRISTINE [Concomitant]
     Active Substance: CYCLOPHOSPHAMIDE\DEXAMETHASONE\DOXORUBICIN\VINCRISTINE
     Dosage: UNK
     Route: 065
  4. METHOTREXATE [Concomitant]
     Active Substance: METHOTREXATE
     Dosage: UNK
     Route: 029
  5. DASATINIB [Concomitant]
     Active Substance: DASATINIB
     Dosage: 140 MILLIGRAM, QD
     Route: 065
  6. DASATINIB [Concomitant]
     Active Substance: DASATINIB
     Dosage: 70 MILLIGRAM, QD
     Route: 065
  7. ARIPIPRAZOLE [Concomitant]
     Active Substance: ARIPIPRAZOLE
     Dosage: UNK
     Route: 065

REACTIONS (3)
  - Enterococcal infection [Recovered/Resolved]
  - Drug effective for unapproved indication [Unknown]
  - Off label use [Unknown]
